FAERS Safety Report 8368300-0 (Version None)
Quarter: 2012Q2

REPORT INFORMATION
  Report Type: 
  Country: None (occurrence: None)
  Receive Date: 20120517
  Receipt Date: 20120509
  Transmission Date: 20120825
  Serious: Yes (Death)
  Sender: FDA-Public Use
  Company Number: PH-BAXTER-2012BAX005167

PATIENT

DRUGS (2)
  1. DIANEAL PD-2 W/ DEXTROSE 1.5% [Suspect]
     Route: 033
     Dates: start: 20101012
  2. DIANEAL PD-2 W/ DEXTROSE 1.5% [Suspect]
     Route: 033

REACTIONS (3)
  - DYSPNOEA [None]
  - CARDIO-RESPIRATORY ARREST [None]
  - OEDEMA PERIPHERAL [None]
